FAERS Safety Report 12147372 (Version 1)
Quarter: 2016Q1

REPORT INFORMATION
  Report Type: Spontaneous
  Country: US (occurrence: US)
  Receive Date: 20160304
  Receipt Date: 20160304
  Transmission Date: 20160526
  Serious: No
  Sender: FDA-Public Use
  Company Number: US-GE HEALTHCARE MEDICAL DIAGNOSTICS-VISP-PR-1512S-0498

PATIENT
  Age: 60 Year
  Sex: Female
  Weight: 74.91 kg

DRUGS (3)
  1. VISIPAQUE [Suspect]
     Active Substance: IODIXANOL
     Indication: ABDOMINAL PAIN
     Route: 042
     Dates: start: 20151127, end: 20151127
  2. VISIPAQUE [Suspect]
     Active Substance: IODIXANOL
     Indication: DIAGNOSTIC PROCEDURE
  3. VISIPAQUE [Suspect]
     Active Substance: IODIXANOL
     Indication: ABDOMINAL PAIN UPPER

REACTIONS (1)
  - Pruritus [Unknown]

NARRATIVE: CASE EVENT DATE: 20151127
